FAERS Safety Report 4427665-2 (Version None)
Quarter: 2004Q3

REPORT INFORMATION
  Report Type: 
  Country: None (occurrence: None)
  Receive Date: 20040812
  Receipt Date: 20040730
  Transmission Date: 20050211
  Serious: Yes (Hospitalization)
  Sender: FDA-Public Use
  Company Number: 2004-UK-00494UK

PATIENT
  Age: 26 Year
  Sex: Female

DRUGS (5)
  1. NEVIRAPINE (EU/1/97/055/001) (NEVIRAPINE) (TA) [Suspect]
     Indication: RETROVIRAL INFECTION
     Dosage: 200 MG (NR) PO
     Route: 048
     Dates: start: 20040105
  2. COMBIVIR [Concomitant]
  3. AZITHROMYCIN (AZITHROMYCIN) (NR) [Concomitant]
  4. CORTRIMOXAZOLE (NR) [Concomitant]
  5. CLARITHROMYCIN (CLARITHROMYCIN) (NR) [Concomitant]

REACTIONS (6)
  - CD4 LYMPHOCYTES DECREASED [None]
  - FACE OEDEMA [None]
  - HEPATITIS [None]
  - PAIN IN EXTREMITY [None]
  - PARAESTHESIA [None]
  - SWELLING FACE [None]
